FAERS Safety Report 17465108 (Version 2)
Quarter: 2020Q1

REPORT INFORMATION
  Report Type: Report from Study
  Country: NL (occurrence: NL)
  Receive Date: 20200226
  Receipt Date: 20200303
  Transmission Date: 20200409
  Serious: Yes (Hospitalization, Other)
  Sender: FDA-Public Use
  Company Number: NL-GILEAD-2019-0432661

PATIENT
  Age: 59 Year
  Sex: Male
  Weight: 84.4 kg

DRUGS (40)
  1. VALACICLOVIR [Concomitant]
     Active Substance: VALACYCLOVIR HYDROCHLORIDE
     Dosage: 500,MG,TWICE DAILY
     Route: 048
     Dates: start: 20191001, end: 20191008
  2. PHOSPHATE [PHOSPHORIC ACID SODIUM] [Concomitant]
     Active Substance: SODIUM PHOSPHATE
     Dosage: 300,OTHER,ONCE
     Route: 048
     Dates: start: 20191006, end: 20191006
  3. OXYGEN. [Concomitant]
     Active Substance: OXYGEN
     Dosage: 1,L/MIN,CONTINUOUS
     Route: 055
     Dates: start: 20191001, end: 20191001
  4. CYCLOPHOSPHAMIDE. [Suspect]
     Active Substance: CYCLOPHOSPHAMIDE
     Indication: BONE MARROW CONDITIONING REGIMEN
     Dosage: ^500^
     Route: 042
     Dates: start: 20190926, end: 20190928
  5. PARACETAMOL [Concomitant]
     Active Substance: ACETAMINOPHEN
     Dosage: 1000,MG,THREE TIMES DAILY
     Route: 048
     Dates: start: 20191010, end: 20191018
  6. ZOFRAN [Concomitant]
     Active Substance: ONDANSETRON HYDROCHLORIDE
     Dosage: 8,MG,TWICE DAILY
     Route: 048
     Dates: start: 20190926, end: 20191004
  7. METOCLOPRAMIDE. [Concomitant]
     Active Substance: METOCLOPRAMIDE
     Dosage: 10,MG,THREE TIMES DAILY
     Route: 042
     Dates: start: 20191010, end: 20191017
  8. OXYCODON [Concomitant]
     Active Substance: OXYCODONE
     Dosage: 5,MG,OTHER
     Route: 048
     Dates: start: 20191006, end: 20191008
  9. OXYGEN. [Concomitant]
     Active Substance: OXYGEN
     Dosage: 1,L/MIN,CONTINUOUS
     Route: 055
     Dates: start: 20191009, end: 20191010
  10. MESNA. [Suspect]
     Active Substance: MESNA
     Dosage: 400
     Route: 065
     Dates: start: 20190927, end: 20190927
  11. PARACETAMOL [Concomitant]
     Active Substance: ACETAMINOPHEN
     Dosage: UNK,OTHER,AS NECESSARY
     Route: 048
  12. METOCLOPRAMIDE. [Concomitant]
     Active Substance: METOCLOPRAMIDE
     Dosage: 10,MG,THREE TIMES DAILY
     Route: 048
     Dates: start: 20190927, end: 20191017
  13. OXYGEN. [Concomitant]
     Active Substance: OXYGEN
     Dosage: 3,L/MIN,CONTINUOUS
     Route: 055
     Dates: start: 20191007, end: 20191008
  14. OXYGEN. [Concomitant]
     Active Substance: OXYGEN
     Dosage: 2,L/MIN,CONTINUOUS
     Route: 055
     Dates: start: 20191008, end: 20191009
  15. PRIMPERAN [Concomitant]
     Active Substance: METOCLOPRAMIDE HYDROCHLORIDE
     Dosage: 10,MG,THREE TIMES DAILY
     Route: 048
     Dates: start: 20190927, end: 20191004
  16. MESNA. [Suspect]
     Active Substance: MESNA
     Dosage: 400
     Route: 065
     Dates: start: 20190928, end: 20190928
  17. CEFTRIAXON [Concomitant]
     Active Substance: CEFTRIAXONE
     Dosage: 2000,MG,TWICE DAILY
     Route: 042
     Dates: start: 20191008, end: 20191010
  18. MOVICOLON [Concomitant]
     Active Substance: POLYETHYLENE GLYCOL 3350\POTASSIUM CHLORIDE\SODIUM BICARBONATE\SODIUM CHLORIDE
     Dosage: 13.8,G,TWICE DAILY
     Route: 048
     Dates: start: 20191013, end: 20191015
  19. NACL [Concomitant]
     Active Substance: SODIUM CHLORIDE
     Dosage: 62.5,OTHER,CONTINUOUS
     Route: 042
     Dates: start: 20191001, end: 20191003
  20. FENTANYL. [Concomitant]
     Active Substance: FENTANYL
     Dosage: 100,MG,FOUR TIMES DAILY
     Route: 050
     Dates: start: 20191001, end: 20191003
  21. MESNA. [Suspect]
     Active Substance: MESNA
     Dosage: 400
     Route: 065
     Dates: start: 20190929, end: 20190929
  22. VALACICLOVIR [Concomitant]
     Active Substance: VALACYCLOVIR HYDROCHLORIDE
     Dosage: 500,MG,TWICE DAILY
     Route: 048
     Dates: start: 20191011
  23. MAGNESIUM SULFATE. [Concomitant]
     Active Substance: MAGNESIUM SULFATE
     Dosage: 2000,MG,ONCE
     Route: 042
     Dates: start: 20191007, end: 20191007
  24. SODIUM [Concomitant]
     Active Substance: SODIUM
     Dosage: 216,OTHER,ONCE
     Route: 048
     Dates: start: 20191006, end: 20191006
  25. FLUDARABINE [Suspect]
     Active Substance: FLUDARABINE PHOSPHATE
     Indication: BONE MARROW CONDITIONING REGIMEN
     Dosage: ^30^
     Route: 042
     Dates: start: 20190926, end: 20190928
  26. PARACETAMOL [Concomitant]
     Active Substance: ACETAMINOPHEN
     Dosage: 1000,MG,FOUR TIMES DAILY
     Route: 048
     Dates: start: 20190927, end: 20191007
  27. PARACETAMOL [Concomitant]
     Active Substance: ACETAMINOPHEN
     Dosage: 1000,MG,ONCE
     Route: 048
     Dates: start: 20191006, end: 20191006
  28. PARACETAMOL [Concomitant]
     Active Substance: ACETAMINOPHEN
     Dosage: 1000,MG,FOUR TIMES DAILY
     Route: 042
     Dates: start: 20191008, end: 20191010
  29. OXYCODON [Concomitant]
     Active Substance: OXYCODONE
     Dosage: 10,MG,TWICE DAILY
     Route: 048
     Dates: start: 20191006, end: 20191007
  30. MOVICOLON [Concomitant]
     Active Substance: POLYETHYLENE GLYCOL 3350\POTASSIUM CHLORIDE\SODIUM BICARBONATE\SODIUM CHLORIDE
     Dosage: 13.8,G,DAILY
     Route: 048
     Dates: start: 20191001, end: 20191009
  31. AXICABTAGENE CILOLEUCEL [Suspect]
     Active Substance: AXICABTAGENE CILOLEUCEL
     Indication: DIFFUSE LARGE B-CELL LYMPHOMA
     Dosage: 68
     Route: 042
     Dates: start: 20191001, end: 20191001
  32. PARACETAMOL [Concomitant]
     Active Substance: ACETAMINOPHEN
     Dosage: 1000,MG,THREE TIMES DAILY
     Route: 042
     Dates: start: 20191010, end: 20191010
  33. COTRIMOXAZOL [Concomitant]
     Active Substance: SULFAMETHOXAZOLE\TRIMETHOPRIM
     Dosage: 480,MG,DAILY
     Route: 048
     Dates: start: 20191001
  34. OXYCODON [Concomitant]
     Active Substance: OXYCODONE
     Dosage: 20,MG,TWICE DAILY
     Route: 048
     Dates: start: 20191007, end: 20191008
  35. GENTAMICINE [GENTAMICIN SULFATE] [Concomitant]
     Active Substance: GENTAMICIN SULFATE
     Dosage: 414.504,MG,DAILY
     Route: 042
     Dates: start: 20191005, end: 20191010
  36. MESNA. [Suspect]
     Active Substance: MESNA
     Indication: PROPHYLAXIS
     Dosage: 400
     Route: 065
     Dates: start: 20190926, end: 20190926
  37. PARACETAMOL [Concomitant]
     Active Substance: ACETAMINOPHEN
     Dosage: UNK,OTHER,AS NECESSARY
     Route: 048
  38. CLEMASTINE [Concomitant]
     Active Substance: CLEMASTINE
     Dosage: 2,MG,ONCE
     Route: 042
     Dates: start: 20191001, end: 20191001
  39. CEFTRIAXON [Concomitant]
     Active Substance: CEFTRIAXONE
     Dosage: 2000,MG,DAILY
     Route: 042
     Dates: start: 20191005, end: 20191008
  40. LORAZEPAM. [Concomitant]
     Active Substance: LORAZEPAM
     Dosage: 1,MG,THREE TIMES DAILY
     Route: 048
     Dates: start: 20190929, end: 20191003

REACTIONS (10)
  - Depressed level of consciousness [Recovered/Resolved]
  - Ataxia [Recovered/Resolved]
  - Bradyphrenia [Recovered/Resolved]
  - Nausea [Recovered/Resolved]
  - Aphasia [Recovered/Resolved]
  - Vomiting [Recovered/Resolved]
  - Headache [Recovered/Resolved]
  - Memory impairment [Recovered/Resolved]
  - Bradyphrenia [Recovered/Resolved]
  - Tremor [Recovered/Resolved]

NARRATIVE: CASE EVENT DATE: 20191005
